FAERS Safety Report 23064556 (Version 1)
Quarter: 2023Q4

REPORT INFORMATION
  Report Type: Spontaneous
  Country: US (occurrence: None)
  Receive Date: 20231013
  Receipt Date: 20231013
  Transmission Date: 20240110
  Serious: Yes (Hospitalization)
  Sender: FDA-Public Use
  Company Number: None

PATIENT
  Age: 65 Year
  Sex: Female
  Weight: 102 kg

DRUGS (1)
  1. LOSARTAN POTASSIUM [Suspect]
     Active Substance: LOSARTAN POTASSIUM
     Dosage: FREQUENCY : DAILY;?
     Route: 048
     Dates: start: 20220708, end: 20221127

REACTIONS (1)
  - Angioedema [None]

NARRATIVE: CASE EVENT DATE: 20221127
